FAERS Safety Report 24398164 (Version 1)
Quarter: 2024Q4

REPORT INFORMATION
  Report Type: Spontaneous
  Country: US (occurrence: US)
  Receive Date: 20241004
  Receipt Date: 20241004
  Transmission Date: 20250115
  Serious: No
  Sender: MERZ
  Company Number: US-MRZWEB-2024090000168

PATIENT

DRUGS (1)
  1. XEOMIN [Suspect]
     Active Substance: INCOBOTULINUMTOXINA
     Indication: Skin cosmetic procedure
     Dosage: 26 025
     Dates: start: 20240913, end: 20240913

REACTIONS (2)
  - Paraesthesia [Unknown]
  - Overdose [Unknown]

NARRATIVE: CASE EVENT DATE: 20240913
